FAERS Safety Report 6259622-8 (Version None)
Quarter: 2009Q3

REPORT INFORMATION
  Report Type: 
  Country: None (occurrence: None)
  Receive Date: 20090708
  Receipt Date: 20090702
  Transmission Date: 20100115
  Serious: Yes (Hospitalization, Other)
  Sender: FDA-Public Use
  Company Number: DE-JNJFOC-20090101419

PATIENT
  Sex: Female
  Weight: 52 kg

DRUGS (11)
  1. HALDOL [Suspect]
     Route: 048
  2. HALDOL [Suspect]
     Route: 048
  3. HALDOL [Suspect]
     Route: 048
  4. HALDOL [Suspect]
     Route: 048
  5. HALDOL [Suspect]
     Indication: DRUG USE FOR UNKNOWN INDICATION
     Route: 048
  6. MELNEURIN [Suspect]
     Indication: DRUG USE FOR UNKNOWN INDICATION
     Route: 048
  7. SEROQUEL [Suspect]
     Route: 048
  8. SEROQUEL [Suspect]
     Route: 048
  9. SEROQUEL [Suspect]
     Indication: BIPOLAR DISORDER
     Route: 048
  10. L-THYROXIN [Concomitant]
     Route: 048
  11. PANTOZOL [Concomitant]
     Route: 048

REACTIONS (2)
  - FALL [None]
  - LONG QT SYNDROME [None]
